FAERS Safety Report 5797468-5 (Version None)
Quarter: 2008Q2

REPORT INFORMATION
  Report Type: 
  Country: None (occurrence: None)
  Receive Date: 20080630
  Receipt Date: 20080612
  Transmission Date: 20081010
  Serious: Yes (Other)
  Sender: FDA-Public Use
  Company Number: ALA_00078_2008

PATIENT
  Sex: Male

DRUGS (2)
  1. REGLAN [Suspect]
     Indication: GASTROOESOPHAGEAL REFLUX DISEASE
     Dosage: (10 MG QID), (10 MG TID ORAL)
     Route: 048
     Dates: start: 20020618, end: 20060815
  2. REGLAN [Suspect]
     Indication: GASTROOESOPHAGEAL REFLUX DISEASE
     Dosage: (10 MG QID), (10 MG TID ORAL)
     Route: 048
     Dates: start: 20010125

REACTIONS (8)
  - ANXIETY [None]
  - BLEPHAROSPASM [None]
  - CONVERSION DISORDER [None]
  - EXTRAPYRAMIDAL DISORDER [None]
  - MUSCLE TWITCHING [None]
  - NAUSEA [None]
  - RESTLESS LEGS SYNDROME [None]
  - TARDIVE DYSKINESIA [None]
